FAERS Safety Report 11321567 (Version 3)
Quarter: 2018Q1

REPORT INFORMATION
  Report Type: Spontaneous
  Country: US (occurrence: US)
  Receive Date: 20150729
  Receipt Date: 20180102
  Transmission Date: 20180508
  Serious: Yes (Hospitalization, Other)
  Sender: FDA-Public Use
  Company Number: US-PFIZER INC-2015251760

PATIENT
  Age: 82 Year
  Sex: Female

DRUGS (24)
  1. CARTIA XT [Concomitant]
     Active Substance: DILTIAZEM HYDROCHLORIDE
     Dosage: 180 MG, 1X/DAY [1 TAB DAILY AM]
  2. MYSOLINE [Concomitant]
     Active Substance: PRIMIDONE
     Dosage: 250 MG, 2X/DAY
  3. TRAMADOL. [Concomitant]
     Active Substance: TRAMADOL
     Dosage: 150 MG, AS NEEDED [3 PER DAY AS NEEDED]
  4. ALBUTEROL SULFATE. [Concomitant]
     Active Substance: ALBUTEROL SULFATE
     Dosage: UNK, 3X/DAY
  5. ACETAMINOPHEN. [Concomitant]
     Active Substance: ACETAMINOPHEN
     Dosage: UNK UNK, 1X/DAY [325: 1 AM]
  6. FOSAMAX [Concomitant]
     Active Substance: ALENDRONATE SODIUM
     Dosage: 70 MG: 1 WEEKLY SAME DAY EMPTY
  7. COUMADIN [Concomitant]
     Active Substance: WARFARIN SODIUM
     Dosage: 7.5 MG, 1X/DAY [1 1/2 DAILY @BEDTIME]
  8. HUMULIN R [Concomitant]
     Active Substance: INSULIN HUMAN
     Dosage: UNK, AS NEEDED (SLIDING SCALE)
  9. HUMULIN N [Concomitant]
     Active Substance: INSULIN HUMAN
     Dosage: UNK, 1X/DAY (35, AM)
  10. VITAMIN D3 [Concomitant]
     Active Substance: CHOLECALCIFEROL
     Dosage: 1 DF, 1X/DAY [1 PER DAY]
  11. ZYRTEC [Concomitant]
     Active Substance: CETIRIZINE HYDROCHLORIDE
     Dosage: UNK, AS NEEDED
  12. HYDROCODONE [Concomitant]
     Active Substance: HYDROCODONE
     Dosage: UNK, AS NEEDED [10/325: AS NEEDED 3 PER DAY]
  13. MECLIZINE [Concomitant]
     Active Substance: MECLIZINE HYDROCHLORIDE
     Dosage: 50 MG, AS NEEDED [2 DAILY AS NEEDED]
  14. METFORMIN [Concomitant]
     Active Substance: METFORMIN HYDROCHLORIDE
     Dosage: 500 MG, 3X/DAY [1 TAB 3 X DAY WITH MEALS]
  15. ZOCOR [Concomitant]
     Active Substance: SIMVASTATIN
     Dosage: 40 MG, 1X/DAY (BEDTIME)
  16. ECOTRIN [Concomitant]
     Active Substance: ASPIRIN
     Dosage: 325 MG, 1X/DAY (AM)
  17. CALCIUM [Concomitant]
     Active Substance: CALCIUM
     Dosage: 600 MG, 2X/DAY [1 TAB 2 X DAILY AM PM]
  18. FUROSEMIDE. [Concomitant]
     Active Substance: FUROSEMIDE
     Dosage: 80 MG, 1X/DAY [40 MG: 2 DAILY AM]
  19. KLOR-CON M20 [Concomitant]
     Active Substance: POTASSIUM CHLORIDE
     Dosage: 2 DF, 2X/DAY [2 DAILY: AM + PM]
  20. SYNTHROID [Concomitant]
     Active Substance: LEVOTHYROXINE SODIUM
     Dosage: 0.15 MG, 1X/DAY [1 DAILY AM]
  21. REVATIO [Suspect]
     Active Substance: SILDENAFIL CITRATE
     Indication: PULMONARY ARTERIAL HYPERTENSION
     Dosage: 20 MG, 3X/DAY [1 TAB EVERY 8 HRS]
     Route: 048
  22. FOLIC ACID. [Concomitant]
     Active Substance: FOLIC ACID
     Dosage: 2 MG, 1X/DAY [1 MG: 2 DAILY PM]
  23. HYDROCODONE BITARTRATE AND CHLORPHENIRAMINE M [Concomitant]
     Dosage: 5 ML, 2X/DAY [5ML (1TSP) TWICE DAILY]
  24. WALGREENS E VITAMIN [Concomitant]
     Indication: VITAMIN SUPPLEMENTATION
     Dosage: 1 DF, DAILY

REACTIONS (2)
  - Pneumonia [Unknown]
  - Malaise [Unknown]

NARRATIVE: CASE EVENT DATE: 20170101
